FAERS Safety Report 9691585 (Version 1)
Quarter: 2013Q4

REPORT INFORMATION
  Report Type: Spontaneous
  Country: US (occurrence: US)
  Receive Date: 20131115
  Receipt Date: 20131115
  Transmission Date: 20140711
  Serious: Yes (Hospitalization, Other)
  Sender: FDA-Public Use
  Company Number: US-CELGENEUS-163-50794-13110772

PATIENT
  Age: 60 Year
  Sex: Male

DRUGS (5)
  1. VIDAZA [Suspect]
     Indication: SYSTEMIC MASTOCYTOSIS
     Route: 065
  2. VIDAZA [Suspect]
     Indication: CHRONIC MYELOMONOCYTIC LEUKAEMIA
  3. FENTANYL [Suspect]
     Indication: PAIN
     Route: 062
  4. LORAZEPAM [Concomitant]
     Indication: TONIC CONVULSION
     Route: 065
  5. NALOXONE [Concomitant]
     Indication: PRODUCT USED FOR UNKNOWN INDICATION
     Route: 041

REACTIONS (6)
  - Foreign body aspiration [Unknown]
  - Overdose [Unknown]
  - Thrombocytopenia [Unknown]
  - Renal failure [Unknown]
  - Subdural haematoma [Unknown]
  - Tonic convulsion [Unknown]
